FAERS Safety Report 14526009 (Version 19)
Quarter: 2022Q4

REPORT INFORMATION
  Report Type: Report from Study
  Country: JP (occurrence: None)
  Receive Date: 20180213
  Receipt Date: 20221010
  Transmission Date: 20230112
  Serious: Yes (Hospitalization)
  Sender: FDA-Public Use
  Company Number: JP-ROCHE-2070125

PATIENT
  Age: 69 Year
  Sex: Male
  Weight: 65.9 kg

DRUGS (14)
  1. ATEZOLIZUMAB [Suspect]
     Active Substance: ATEZOLIZUMAB
     Indication: Metastatic renal cell carcinoma
     Dosage: FOR 16 CYCLES (EACH CYCLE OF 21 DAYS) OR 1 YEAR (WHICHEVER OCCURS FIRST) (AS PER PROTOCOL).?DATE OF
     Route: 042
     Dates: start: 20171226
  2. HALCION [Concomitant]
     Active Substance: TRIAZOLAM
     Indication: Insomnia
     Route: 048
     Dates: end: 20180408
  3. XYZAL [Concomitant]
     Active Substance: LEVOCETIRIZINE DIHYDROCHLORIDE
     Route: 048
     Dates: start: 2018
  4. MONTELUKAST [Concomitant]
     Active Substance: MONTELUKAST SODIUM
     Indication: Asthma
     Route: 048
     Dates: end: 2018
  5. MAGNESIUM OXIDE [Concomitant]
     Active Substance: MAGNESIUM OXIDE
     Indication: Constipation
     Route: 048
  6. HYDROXYZINE HYDROCHLORIDE [Concomitant]
     Active Substance: HYDROXYZINE HYDROCHLORIDE
     Route: 042
     Dates: start: 20180209, end: 20180209
  7. CEFOTIAM HYDROCHLORIDE [Concomitant]
     Active Substance: CEFOTIAM HYDROCHLORIDE
     Route: 042
     Dates: start: 20180209, end: 20180212
  8. RABEPRAZOLE SODIUM [Concomitant]
     Active Substance: RABEPRAZOLE SODIUM
     Route: 048
     Dates: start: 20180214, end: 2020
  9. SULFAMETHOXAZOLE\TRIMETHOPRIM [Concomitant]
     Active Substance: SULFAMETHOXAZOLE\TRIMETHOPRIM
     Route: 048
     Dates: start: 20180217, end: 201807
  10. RISEDRONATE SODIUM [Concomitant]
     Active Substance: RISEDRONATE SODIUM
     Route: 048
     Dates: start: 20180217
  11. CLARITIN [Concomitant]
     Active Substance: LORATADINE
     Indication: Sinusitis
     Route: 048
     Dates: start: 20180213, end: 20180225
  12. ZOLPIDEM TARTRATE [Concomitant]
     Active Substance: ZOLPIDEM TARTRATE
     Indication: Insomnia
     Route: 048
     Dates: start: 20180216, end: 20180408
  13. SINGULAIR [Concomitant]
     Active Substance: MONTELUKAST SODIUM
     Indication: Asthma
     Route: 048
     Dates: start: 20180227, end: 201808
  14. CABOMETYX [Concomitant]
     Active Substance: CABOZANTINIB S-MALATE
     Indication: Neoplasm malignant
     Dosage: 60 U, 40 U
     Dates: start: 20220614

REACTIONS (1)
  - Polymyositis [Recovering/Resolving]

NARRATIVE: CASE EVENT DATE: 20180130
